FAERS Safety Report 7972862-2 (Version None)
Quarter: 2011Q4

REPORT INFORMATION
  Report Type: 
  Country: None (occurrence: None)
  Receive Date: 20111213
  Receipt Date: 20111206
  Transmission Date: 20120403
  Serious: Yes (Other)
  Sender: FDA-Public Use
  Company Number: CA-ROCHE-1019449

PATIENT
  Sex: Female
  Weight: 77.18 kg

DRUGS (11)
  1. MABTHERA [Suspect]
     Indication: PRODUCT USED FOR UNKNOWN INDICATION
     Dosage: DAY1 AND DAY 15
     Route: 042
     Dates: start: 20110428
  2. METHOTREXATE [Concomitant]
     Indication: RHEUMATOID ARTHRITIS
  3. FOLIC ACID [Concomitant]
  4. SULFASALAZINE [Concomitant]
     Indication: RHEUMATOID ARTHRITIS
  5. CALCIUM [Concomitant]
  6. RAMIPRIL [Concomitant]
     Indication: HYPERTENSION
  7. TYLENOL W/ CODEINE NO. 3 [Concomitant]
     Indication: PAIN
  8. CELEBREX [Concomitant]
  9. VITALUX [Concomitant]
     Indication: MACULAR DEGENERATION
  10. VITAMIN D [Concomitant]
  11. GLUCAMINOL [Concomitant]
     Indication: DIABETES MELLITUS

REACTIONS (1)
  - MACULAR DEGENERATION [None]
